FAERS Safety Report 11852249 (Version 1)
Quarter: 2015Q4

REPORT INFORMATION
  Report Type: Spontaneous
  Country: US (occurrence: US)
  Receive Date: 20151218
  Receipt Date: 20151218
  Transmission Date: 20160305
  Serious: Yes (Hospitalization)
  Sender: FDA-Public Use
  Company Number: US-ACTELION-A-NJ2015-128575

PATIENT
  Age: 18 Month
  Sex: Male

DRUGS (11)
  1. PREDNISOLONE. [Concomitant]
     Active Substance: PREDNISOLONE
     Dosage: 2 ML, QD
     Route: 048
     Dates: start: 20150618
  2. NYSTATIN. [Concomitant]
     Active Substance: NYSTATIN
     Dosage: 1 ML, TID
     Route: 048
     Dates: start: 20150618
  3. VALCYTE [Concomitant]
     Active Substance: VALGANCICLOVIR HYDROCHLORIDE
     Dosage: 3.5 ML, UNK
     Route: 048
     Dates: start: 20150618
  4. LANSOPRAZOLE. [Concomitant]
     Active Substance: LANSOPRAZOLE
     Dosage: 2.5 ML, QD
     Dates: start: 20150618
  5. IRON [Concomitant]
     Active Substance: IRON
     Dosage: 0.5 ML, QD
     Route: 048
     Dates: start: 20150618
  6. ASPIRIN (E.C.) [Concomitant]
     Active Substance: ASPIRIN
     Dosage: 0.5 MG, QD
     Dates: start: 20150618
  7. AMLODIPINE BESYLATE. [Concomitant]
     Active Substance: AMLODIPINE BESYLATE
     Dosage: 0.5 TAB, QD
     Route: 048
     Dates: start: 20150618
  8. VITAMIN D3 [Concomitant]
     Active Substance: CHOLECALCIFEROL
     Dosage: 2.5 ML, QD
     Route: 048
     Dates: start: 20150618
  9. ZAVESCA [Suspect]
     Active Substance: MIGLUSTAT
     Indication: LIPIDOSIS
     Dosage: 100 MG, QD
     Route: 048
     Dates: start: 20150619
  10. METOCLOPRAMIDE HCL [Concomitant]
     Active Substance: METOCLOPRAMIDE HYDROCHLORIDE
     Dosage: 1.3 ML, BID
     Route: 048
     Dates: start: 20150618
  11. MAGONATE [Concomitant]
     Active Substance: MAGNESIUM CARBONATE
     Dosage: 2.5 ML, Q8HRS
     Route: 048
     Dates: start: 20150618

REACTIONS (1)
  - Pneumonia viral [Unknown]

NARRATIVE: CASE EVENT DATE: 20151116
